FAERS Safety Report 11440636 (Version 1)
Quarter: 2015Q3

REPORT INFORMATION
  Report Type: Spontaneous
  Country: US (occurrence: US)
  Receive Date: 20150821
  Receipt Date: 20150821
  Transmission Date: 20151125
  Serious: Yes (Hospitalization)
  Sender: FDA-Public Use
  Company Number: US-ELI_LILLY_AND_COMPANY-US200706004945

PATIENT
  Age: 65 Year
  Sex: Male

DRUGS (5)
  1. CYMBALTA [Suspect]
     Active Substance: DULOXETINE HYDROCHLORIDE
     Indication: NEURALGIA
     Dosage: 30 MG, UNKNOWN
     Route: 048
     Dates: start: 2005
  2. HYDROCHLOROTHIAZIDE. [Concomitant]
     Active Substance: HYDROCHLOROTHIAZIDE
     Dates: start: 20050201
  3. LISINOPRIL. [Concomitant]
     Active Substance: LISINOPRIL
     Dates: start: 20050201
  4. DILTIAZEM [Concomitant]
     Active Substance: DILTIAZEM
     Dates: start: 20050201
  5. SOTALOL. [Concomitant]
     Active Substance: SOTALOL
     Dates: start: 20050201

REACTIONS (2)
  - Hyperhidrosis [Recovered/Resolved]
  - Urinary retention [Recovered/Resolved]
